FAERS Safety Report 24328238 (Version 1)
Quarter: 2024Q3

REPORT INFORMATION
  Report Type: Spontaneous
  Country: US (occurrence: US)
  Receive Date: 20240917
  Receipt Date: 20240917
  Transmission Date: 20241017
  Serious: Yes (Other)
  Sender: JOHNSON AND JOHNSON
  Company Number: US-JNJFOC-20240922418

PATIENT
  Sex: Female

DRUGS (1)
  1. SUDAFED [Suspect]
     Active Substance: PSEUDOEPHEDRINE HYDROCHLORIDE
     Indication: Multiple allergies
     Dosage: TOOK 3 OF THE SLEEVES THAT ARE IN THE 90 COUNT
     Route: 065

REACTIONS (4)
  - Transient ischaemic attack [Unknown]
  - Drug ineffective [Unknown]
  - Overdose [Unknown]
  - Drug screen positive [Unknown]
